FAERS Safety Report 25144003 (Version 3)
Quarter: 2025Q2

REPORT INFORMATION
  Report Type: Spontaneous
  Country: JP (occurrence: JP)
  Receive Date: 20250401
  Receipt Date: 20250513
  Transmission Date: 20250717
  Serious: Yes (Other)
  Sender: MERCK SHARP & DOHME LLC
  Company Number: JP-009507513-2260405

PATIENT
  Age: 91 Year
  Sex: Male

DRUGS (2)
  1. LAGEVRIO [Suspect]
     Active Substance: MOLNUPIRAVIR
     Indication: COVID-19 treatment
     Dosage: STRENGTH: 200 MG
     Route: 048
     Dates: start: 20250222, end: 20250227
  2. GLIMEPIRIDE [Concomitant]
     Active Substance: GLIMEPIRIDE
     Dates: end: 20250226

REACTIONS (3)
  - Depressed level of consciousness [Unknown]
  - Blood glucose decreased [Recovering/Resolving]
  - Cold sweat [Unknown]

NARRATIVE: CASE EVENT DATE: 20250224
